FAERS Safety Report 6450406-4 (Version None)
Quarter: 2009Q4

REPORT INFORMATION
  Report Type: 
  Country: None (occurrence: None)
  Receive Date: 20091116
  Receipt Date: 20090903
  Transmission Date: 20100525
  Serious: No
  Sender: FDA-Public Use
  Company Number: WAES 0909USA00560

PATIENT
  Age: 52 Year
  Sex: Male

DRUGS (2)
  1. ISENTRESS [Suspect]
     Indication: HIV INFECTION
     Dosage: 400 MG/BID/PO
     Route: 048
     Dates: start: 20080701
  2. TRUVADA [Concomitant]

REACTIONS (7)
  - ANXIETY [None]
  - INSOMNIA [None]
  - NASAL DISCOMFORT [None]
  - NASAL INFLAMMATION [None]
  - NERVOUSNESS [None]
  - PSYCHOMOTOR HYPERACTIVITY [None]
  - SINUS HEADACHE [None]
